FAERS Safety Report 25831862 (Version 1)
Quarter: 2025Q3

REPORT INFORMATION
  Report Type: Spontaneous
  Country: US (occurrence: None)
  Receive Date: 20250916
  Receipt Date: 20250916
  Transmission Date: 20251021
  Serious: Yes (Hospitalization)
  Sender: FDA-CTU
  Company Number: None

PATIENT
  Age: 44 Year
  Sex: Male
  Weight: 67.5 kg

DRUGS (2)
  1. COSMETICS [Suspect]
     Active Substance: COSMETICS
     Indication: Acne
  2. COSMETICS [Concomitant]
     Active Substance: COSMETICS

REACTIONS (13)
  - Urine mercury abnormal [None]
  - Tremor [None]
  - Hallucinations, mixed [None]
  - Lethargy [None]
  - Decreased appetite [None]
  - Personality change [None]
  - Confusional state [None]
  - Hallucination, tactile [None]
  - Hypophagia [None]
  - Hyperhidrosis [None]
  - Aphasia [None]
  - Weight decreased [None]
  - Product contamination physical [None]

NARRATIVE: CASE EVENT DATE: 20250816
